FAERS Safety Report 10267030 (Version 1)
Quarter: 2014Q2

REPORT INFORMATION
  Report Type: Spontaneous
  Country: US (occurrence: None)
  Receive Date: 20140625
  Receipt Date: 20140625
  Transmission Date: 20141212
  Serious: Yes (Other)
  Sender: FDA-Public Use
  Company Number: MIN-00975

PATIENT
  Age: 65 Year
  Sex: Female

DRUGS (2)
  1. MINOCYCLINE HYDROCHLORIDE [Suspect]
     Indication: HIDRADENITIS
     Route: 048
  2. ORAL IRON REPLACEMENT THERAPY [Concomitant]

REACTIONS (5)
  - Aortic valve stenosis [None]
  - Ochronosis [None]
  - Pigmentation disorder [None]
  - Aortic valve disease [None]
  - Pigmentation disorder [None]
